FAERS Safety Report 17734107 (Version 1)
Quarter: 2020Q2

REPORT INFORMATION
  Report Type: Report from Study
  Country: US (occurrence: US)
  Receive Date: 20200501
  Receipt Date: 20200501
  Transmission Date: 20200714
  Serious: Yes (Other)
  Sender: FDA-Public Use
  Company Number: US-GILEAD-2020-0459603

PATIENT
  Age: 33 Year
  Sex: Male

DRUGS (1)
  1. AZTREONAM LYSINE [Suspect]
     Active Substance: AZTREONAM LYSINE
     Indication: CYSTIC FIBROSIS
     Dosage: 75MG THREE TIMES A DAY FOR 28 DAYS ON AND 28 DAYS OFF.
     Route: 055
     Dates: start: 20180607

REACTIONS (2)
  - Product dose omission [Unknown]
  - Mycobacterial infection [Not Recovered/Not Resolved]
